FAERS Safety Report 24603905 (Version 1)
Quarter: 2024Q4

REPORT INFORMATION
  Report Type: Spontaneous
  Country: ES (occurrence: ES)
  Receive Date: 20241111
  Receipt Date: 20241111
  Transmission Date: 20250115
  Serious: Yes (Hospitalization, Other)
  Sender: BAXTER
  Company Number: None

PATIENT
  Age: 60 Year
  Sex: Female

DRUGS (6)
  1. PROPOFOL [Interacting]
     Active Substance: PROPOFOL
     Indication: Sedation
     Dosage: UNK, PROPOFOL (2373A)
     Route: 041
     Dates: start: 20241008, end: 20241009
  2. AMIODARONE [Interacting]
     Active Substance: AMIODARONE
     Indication: Atrial fibrillation
     Dosage: 10 ML, ONE TIME IN ONE HOUR, AMIODARONE (392A)
     Route: 041
     Dates: start: 20241008, end: 20241009
  3. PANTOPRAZOLE [Interacting]
     Active Substance: PANTOPRAZOLE
     Indication: Gastritis prophylaxis
     Dosage: 40 MG, 24 HOURS, PANTOPRAZOLE (7275A)
     Route: 041
     Dates: start: 20241008, end: 20241008
  4. DEXMEDETOMIDINE [Interacting]
     Active Substance: DEXMEDETOMIDINE
     Indication: Sedation
     Dosage: UNK, DEXMEDETOMIDINE (8203A)
     Route: 041
     Dates: start: 20241008, end: 20241009
  5. FENTANYL [Interacting]
     Active Substance: FENTANYL
     Indication: Sedation
     Dosage: UNK, FENTANYL (1543A)
     Route: 041
     Dates: start: 20241008, end: 20241009
  6. CEFUROXIME [Concomitant]
     Active Substance: CEFUROXIME
     Indication: Infection prophylaxis
     Dosage: UNK, CEFUROXIME (828A)
     Route: 041
     Dates: start: 20241008, end: 20241009

REACTIONS (5)
  - Acute psychosis [Recovered/Resolved]
  - Echolalia [Recovered/Resolved]
  - Disorientation [Recovered/Resolved]
  - Hallucination [Recovered/Resolved]
  - Agitation [Recovered/Resolved]

NARRATIVE: CASE EVENT DATE: 20241009
